FAERS Safety Report 21209686 (Version 1)
Quarter: 2022Q3

REPORT INFORMATION
  Report Type: Spontaneous
  Country: US (occurrence: US)
  Receive Date: 20220813
  Receipt Date: 20220813
  Transmission Date: 20221027
  Serious: Yes (Other)
  Sender: FDA-Public Use
  Company Number: US-UNITED THERAPEUTICS-UNT-2022-017946

PATIENT

DRUGS (2)
  1. REMODULIN [Suspect]
     Active Substance: TREPROSTINIL
     Indication: Univentricular heart
     Dosage: UNK UNK, CONTINUING
     Route: 058
  2. REMODULIN [Suspect]
     Active Substance: TREPROSTINIL
     Indication: Pulmonary vascular disorder
     Dosage: 0.020 ?G/KG, CONTINUING
     Route: 058

REACTIONS (3)
  - Cardiac failure [Unknown]
  - Univentricular heart [Unknown]
  - Off label use [Unknown]
